FAERS Safety Report 5690887-7 (Version None)
Quarter: 2008Q2

REPORT INFORMATION
  Report Type: 
  Country: None (occurrence: None)
  Receive Date: 20080401
  Receipt Date: 20080324
  Transmission Date: 20081010
  Serious: Yes (Other)
  Sender: FDA-Public Use
  Company Number: US-ASTRAZENECA-2008UW05909

PATIENT
  Age: 64 Year
  Sex: Female
  Weight: 97.5 kg

DRUGS (14)
  1. CRESTOR [Suspect]
     Indication: HYPERCHOLESTEROLAEMIA
     Route: 048
     Dates: start: 20060101
  2. PLAVIX [Concomitant]
  3. DIOVAN [Concomitant]
  4. SYNTHROID [Concomitant]
  5. PREMARIN [Concomitant]
  6. SINGULAIR [Concomitant]
  7. ASPIRIN [Concomitant]
  8. ACTONEL [Concomitant]
  9. MAGNESIUM [Concomitant]
  10. ALEVE [Concomitant]
  11. PROTONIX [Concomitant]
  12. BETOPTIC S [Concomitant]
  13. FLONASE [Concomitant]
  14. CALCIUM [Concomitant]

REACTIONS (4)
  - HYPOAESTHESIA [None]
  - MUSCULAR WEAKNESS [None]
  - MYALGIA [None]
  - PAIN IN EXTREMITY [None]
